FAERS Safety Report 8139075-5 (Version None)
Quarter: 2012Q1

REPORT INFORMATION
  Report Type: 
  Country: None (occurrence: None)
  Receive Date: 20120215
  Receipt Date: 20120207
  Transmission Date: 20120608
  Serious: Yes (Hospitalization, Other)
  Sender: FDA-Public Use
  Company Number: BR-ABBOTT-12P-020-0902688-00

PATIENT
  Sex: Female
  Weight: 40 kg

DRUGS (3)
  1. HUMIRA [Suspect]
     Indication: CROHN'S DISEASE
     Dosage: INDUCTION DOSE
     Route: 058
     Dates: start: 20090201
  2. HUMIRA [Suspect]
     Route: 058
     Dates: start: 20111001
  3. HUMIRA [Suspect]
     Dosage: INDUCTION DOSE
     Route: 058
     Dates: start: 20090216

REACTIONS (7)
  - ARTHRITIS [None]
  - POSTOPERATIVE WOUND INFECTION [None]
  - GASTROINTESTINAL INFLAMMATION [None]
  - ANAEMIA [None]
  - ARTHRALGIA [None]
  - ABDOMINAL ABSCESS [None]
  - SUTURE RUPTURE [None]
